FAERS Safety Report 8929424 (Version 3)
Quarter: 2013Q2

REPORT INFORMATION
  Report Type: Spontaneous
  Country: US (occurrence: None)
  Receive Date: 20121119
  Receipt Date: 20130517
  Transmission Date: 20140414
  Serious: Yes (Other)
  Sender: FDA-Public Use
  Company Number: ACO_32975_2012

PATIENT
  Age: 53 Year
  Sex: Female
  Weight: 74.8 kg

DRUGS (12)
  1. AMPYRA [Suspect]
     Indication: FATIGUE
     Route: 048
     Dates: start: 2011, end: 20121107
  2. CIPROFLOXACIN (CIPROFLOXACIN) [Suspect]
     Indication: URINARY TRACT INFECTION
     Route: 048
     Dates: start: 201211
  3. TSABRI (NATALIZUMAB) [Concomitant]
  4. CARAFATE (SUCRALFATE) TABLET, 1G [Concomitant]
  5. FLUOXETINE (FLUOXETINE) [Concomitant]
  6. RANITIDINE (RANITIDINE) [Concomitant]
  7. BACLOFEN (BACLOFEN) (BACLOFEN) [Concomitant]
  8. TIZANIDINE (TIZANIDINE) [Concomitant]
  9. VESICARE (SOLIFENACIN SUCCINATE) [Concomitant]
  10. ZYRTEC (CETIRIZINE HYDROCHLORIDE) [Concomitant]
  11. CENTRUM (ASCORBIC ACID, BIOTIN, CALCIUM PANTOTHENATE, CYANOCOBALAMIN, ERGOCALCIFEROL, IRON, NICOTINAMIDE, PYRIDOXINE HYDROCHLORIDE, RETINOL, RIBOFLAVIN, THIAMINE HYDROCHLORIDE, TOCOPHERYL ACETATE) [Concomitant]
  12. VIACTIV (CALCIUM) [Concomitant]

REACTIONS (6)
  - Grand mal convulsion [None]
  - Upper respiratory tract infection [None]
  - Multiple sclerosis relapse [None]
  - Petit mal epilepsy [None]
  - Urinary tract infection [None]
  - Drug dose omission [None]
